APPROVED DRUG PRODUCT: CIMETIDINE
Active Ingredient: CIMETIDINE
Strength: 300MG
Dosage Form/Route: TABLET;ORAL
Application: A074568 | Product #002
Applicant: PLIVA INC
Approved: Feb 27, 1997 | RLD: No | RS: No | Type: DISCN